FAERS Safety Report 5308603-7 (Version None)
Quarter: 2007Q2

REPORT INFORMATION
  Report Type: 
  Country: None (occurrence: None)
  Receive Date: 20070426
  Receipt Date: 20070417
  Transmission Date: 20071010
  Serious: Yes (Hospitalization, Disabling)
  Sender: FDA-Public Use
  Company Number: US-MERCK-0704USA03542

PATIENT
  Age: 74 Year
  Sex: Female

DRUGS (4)
  1. FOSAMAX [Suspect]
     Route: 048
  2. PREDNISONE [Concomitant]
     Route: 065
  3. [THERAPY UNSPECIFIED] [Concomitant]
     Route: 065
  4. GLUCOTROL [Concomitant]
     Route: 065

REACTIONS (2)
  - IMPAIRED HEALING [None]
  - TOOTH EXTRACTION [None]
